FAERS Safety Report 6477749-2 (Version None)
Quarter: 2009Q4

REPORT INFORMATION
  Report Type: 
  Country: None (occurrence: None)
  Receive Date: 20091203
  Receipt Date: 20091203
  Transmission Date: 20100525
  Serious: Yes (Life-Threatening, Hospitalization, Other)
  Sender: FDA-Public Use
  Company Number: None

PATIENT
  Age: 45 Year
  Sex: Female
  Weight: 63.5036 kg

DRUGS (1)
  1. GABAPENTIN [Suspect]
     Indication: FACIAL NEURALGIA
     Dosage: 300 MG 3 LATER 4 X DAILY PO
     Route: 048
     Dates: start: 20091005, end: 20091120

REACTIONS (5)
  - ANXIETY [None]
  - HYPOPHAGIA [None]
  - IMPAIRED WORK ABILITY [None]
  - MOOD SWINGS [None]
  - SUICIDAL IDEATION [None]
